FAERS Safety Report 7444800-2 (Version None)
Quarter: 2011Q2

REPORT INFORMATION
  Report Type: 
  Country: None (occurrence: None)
  Receive Date: 20110426
  Receipt Date: 20110426
  Transmission Date: 20111010
  Serious: Yes (Disabling)
  Sender: FDA-Public Use
  Company Number: None

PATIENT
  Age: 12 Year
  Sex: Female
  Weight: 71 kg

DRUGS (1)
  1. RITUXAN [Suspect]
     Indication: NEPHROTIC SYNDROME
     Dosage: 950 MG IV
     Route: 042
     Dates: start: 20110401, end: 20110401

REACTIONS (6)
  - URTICARIA [None]
  - OEDEMA MOUTH [None]
  - HYPERSENSITIVITY [None]
  - INFUSION RELATED REACTION [None]
  - WHEEZING [None]
  - DYSPNOEA [None]
